FAERS Safety Report 20534547 (Version 1)
Quarter: 2022Q1

REPORT INFORMATION
  Report Type: Spontaneous
  Country: US (occurrence: US)
  Receive Date: 20220302
  Receipt Date: 20220302
  Transmission Date: 20220424
  Serious: Yes (Death)
  Sender: FDA-Public Use
  Company Number: US-SUN PHARMACEUTICAL INDUSTRIES LTD-2022R1-327430

PATIENT
  Age: 57 Year
  Sex: Male

DRUGS (2)
  1. AMPHOTERICIN B [Suspect]
     Active Substance: AMPHOTERICIN B
     Indication: Product used for unknown indication
     Dosage: 400 MILLIGRAM, DAILY
     Route: 042
  2. FLUCYTOSINE [Suspect]
     Active Substance: FLUCYTOSINE
     Indication: Product used for unknown indication
     Dosage: 2000 MILLIGRAM
     Route: 048

REACTIONS (2)
  - Disseminated cryptococcosis [Fatal]
  - Hypotension [Fatal]
